FAERS Safety Report 6615181-9 (Version None)
Quarter: 2010Q1

REPORT INFORMATION
  Report Type: 
  Country: None (occurrence: None)
  Receive Date: 20100305
  Receipt Date: 20100225
  Transmission Date: 20100710
  Serious: Yes (Other)
  Sender: FDA-Public Use
  Company Number: PHHY2008BR04107

PATIENT
  Sex: Female
  Weight: 60 kg

DRUGS (7)
  1. CARBAMAZEPINE [Suspect]
     Indication: CONVULSION
     Dosage: 3 IN THE MORNING, 2 IN THE DAY, 3 AT NIGHT
     Route: 048
     Dates: start: 20010101, end: 20070501
  2. TEGRETOL [Suspect]
     Indication: CONVULSION
     Dosage: 3 TABS MORNING, 2 TABS NOON, 3 TABS NIGHT
  3. DIAZEPAM [Concomitant]
     Indication: CONVULSION
     Dosage: 10 MG, PRN
     Route: 048
  4. GARDENAL [Concomitant]
     Indication: CONVULSION
     Dosage: 100 MG, QHS
     Route: 048
     Dates: start: 20010101
  5. RIVOTRIL [Concomitant]
     Dosage: 20 DRP, QHS
     Route: 048
     Dates: start: 20010101
  6. DEPO-PROVERA [Concomitant]
     Indication: DYSMENORRHOEA
     Dosage: 1 INJECTION EVERY 3 MONTHS
     Dates: start: 20010101
  7. GABALLON [Concomitant]

REACTIONS (12)
  - ABASIA [None]
  - AGITATION [None]
  - BALANCE DISORDER [None]
  - COMMUNICATION DISORDER [None]
  - CONSTIPATION [None]
  - CONVULSION [None]
  - CRYING [None]
  - DYSMENORRHOEA [None]
  - FALL [None]
  - GASTRITIS [None]
  - GASTROOESOPHAGEAL REFLUX DISEASE [None]
  - LISTLESS [None]
